FAERS Safety Report 6888678-4 (Version None)
Quarter: 2010Q3

REPORT INFORMATION
  Report Type: 
  Country: None (occurrence: None)
  Receive Date: 20100730
  Receipt Date: 20071025
  Transmission Date: 20110219
  Serious: No
  Sender: FDA-Public Use
  Company Number: US-PFIZER INC-2006014875

PATIENT
  Sex: Male
  Weight: 95.25 kg

DRUGS (6)
  1. LIPITOR [Suspect]
     Indication: BLOOD CHOLESTEROL INCREASED
     Route: 048
     Dates: start: 20050101, end: 20070501
  2. METOPROLOL TARTRATE [Concomitant]
  3. ACETYLSALICYLIC ACID SRT [Concomitant]
  4. ALTACE [Concomitant]
  5. PLAVIX [Concomitant]
  6. CLARINEX [Concomitant]

REACTIONS (7)
  - ARTHRITIS [None]
  - ASTHENIA [None]
  - GAIT DISTURBANCE [None]
  - MUSCULAR WEAKNESS [None]
  - MUSCULOSKELETAL STIFFNESS [None]
  - MYALGIA [None]
  - PAIN [None]
